FAERS Safety Report 9342193 (Version 4)
Quarter: 2014Q2

REPORT INFORMATION
  Report Type: Report from Study
  Country: US (occurrence: US)
  Receive Date: 20130611
  Receipt Date: 20140404
  Transmission Date: 20141212
  Serious: Yes (Hospitalization)
  Sender: FDA-Public Use
  Company Number: US-ROCHE-1230296

PATIENT
  Age: 63 Year
  Sex: Female
  Weight: 68 kg

DRUGS (35)
  1. TRASTUZUMAB EMTANSINE [Suspect]
     Indication: BREAST CANCER METASTATIC
     Dosage: LAST DOSE PRIOR TO SAE 15/MAY/2013, LAST DOSE: 293 MG
     Route: 042
     Dates: start: 20120321
  2. TRICOR (UNITED STATES) [Concomitant]
     Indication: HYPERCHOLESTEROLAEMIA
     Route: 065
     Dates: start: 20081001, end: 20130622
  3. METFORMIN HYDROCHLORIDE [Concomitant]
     Indication: DIABETES MELLITUS
     Route: 065
     Dates: start: 20000828
  4. ASPIRIN [Concomitant]
     Indication: HYPERTENSION
     Route: 065
     Dates: start: 20070307
  5. ALBUTEROL [Concomitant]
     Indication: COUGH
     Route: 065
     Dates: start: 20001222, end: 20130814
  6. LORATADIN [Concomitant]
     Indication: RHINITIS
     Route: 065
     Dates: start: 20040614
  7. AMITRIPTYLINE [Concomitant]
     Indication: INSOMNIA
     Route: 065
     Dates: start: 20040618
  8. ALCOHOL SWAB [Concomitant]
     Indication: DIABETES MELLITUS
     Route: 065
     Dates: start: 20070307
  9. OMEPRAZOL [Concomitant]
     Indication: GASTROOESOPHAGEAL REFLUX DISEASE
     Route: 065
     Dates: start: 20091012
  10. MIGLITOL [Concomitant]
     Indication: DIABETES MELLITUS
     Route: 065
     Dates: start: 20080206, end: 20130814
  11. ATENOLOL [Concomitant]
     Indication: HYPERTENSION
     Route: 065
     Dates: start: 20100121
  12. PIOGLITAZONE HYDROCHLORIDE [Concomitant]
     Indication: DIABETES MELLITUS
     Route: 065
     Dates: start: 20101112
  13. SIMVASTATIN [Concomitant]
     Indication: HYPERCHOLESTEROLAEMIA
     Route: 065
     Dates: start: 20110728
  14. INSULIN GLARGINE [Concomitant]
     Indication: DIABETES MELLITUS
     Route: 065
     Dates: start: 20081114
  15. FOLIC ACID [Concomitant]
     Route: 065
     Dates: start: 20091012
  16. AMLODIPINE BESYLATE [Concomitant]
     Indication: HYPERTENSION
     Route: 065
     Dates: start: 20100507, end: 20130710
  17. DOCUSATE SODIUM [Concomitant]
     Indication: CONSTIPATION
     Route: 065
     Dates: start: 20120112, end: 20130814
  18. COLCHICINE [Concomitant]
     Indication: DIARRHOEA
     Route: 065
     Dates: start: 20120201
  19. ACETAMINOPHEN [Concomitant]
     Indication: PAIN
     Route: 065
     Dates: start: 20120301
  20. PROCHLORPERAZINE MALEATE [Concomitant]
     Indication: NAUSEA
     Route: 065
     Dates: start: 20120321, end: 20130814
  21. LANTUS SOLOSTAR [Concomitant]
     Indication: DIABETES MELLITUS
     Route: 065
     Dates: start: 20120507
  22. LORAZEPAM [Concomitant]
     Route: 065
     Dates: start: 20120321
  23. DEXAMETHASONE [Concomitant]
     Route: 065
     Dates: start: 20120321
  24. GRANISETRON [Concomitant]
     Route: 065
     Dates: start: 20120321
  25. INSULIN LISPRO [Concomitant]
     Indication: DIABETES MELLITUS
     Route: 065
     Dates: start: 20120627
  26. CLOTRIMAZOLE 1% CREME [Concomitant]
     Indication: VAGINAL DISCHARGE
     Route: 065
     Dates: start: 20120829, end: 20130814
  27. CELEXA (UNITED STATES) [Concomitant]
     Indication: DEPRESSION
     Route: 065
     Dates: start: 20121030
  28. CELEXA (UNITED STATES) [Concomitant]
     Route: 065
     Dates: start: 20130220
  29. COZAAR [Concomitant]
     Indication: HYPERTENSION
     Route: 065
     Dates: start: 20121130, end: 20130622
  30. FERROUS SULFATE [Concomitant]
     Indication: BLOOD IRON DECREASED
     Route: 065
     Dates: start: 20121119, end: 20130814
  31. CAPSAICIN [Concomitant]
     Indication: PAIN
     Route: 065
     Dates: start: 20121030, end: 20130918
  32. FLUCONAZOLE [Concomitant]
     Indication: VULVOVAGINAL MYCOTIC INFECTION
     Route: 065
     Dates: start: 20130220
  33. THIAMINE HCL [Concomitant]
     Indication: ALCOHOLISM
     Route: 065
     Dates: start: 20091012, end: 20130814
  34. INSULIN ASPART [Concomitant]
     Indication: DIABETES MELLITUS
     Route: 065
     Dates: start: 20121130
  35. PLACEBO [Suspect]
     Indication: BREAST CANCER METASTATIC
     Dosage: LAST DOSE PRIOR TO SAE 15/MAY/2013
     Route: 042
     Dates: start: 20120321

REACTIONS (1)
  - Fall [Unknown]
